FAERS Safety Report 20841252 (Version 1)
Quarter: 2022Q2

REPORT INFORMATION
  Report Type: Spontaneous
  Country: US (occurrence: US)
  Receive Date: 20220517
  Receipt Date: 20220517
  Transmission Date: 20220721
  Serious: Yes (Other)
  Sender: FDA-Public Use
  Company Number: US-009507513-2205USA003847

PATIENT
  Age: 57 Year
  Sex: Male

DRUGS (2)
  1. KEYTRUDA [Suspect]
     Active Substance: PEMBROLIZUMAB
     Indication: Mucoepidermoid carcinoma of salivary gland
     Dosage: 200 MILLIGRAM, Q3W, 11 CYCLES
  2. KEYTRUDA [Suspect]
     Active Substance: PEMBROLIZUMAB
     Indication: Metastases to lung
     Dosage: 200 MILLIGRAM, Q3W,12 CYCLE

REACTIONS (3)
  - Immune-mediated lung disease [Unknown]
  - Immune-mediated lung disease [Unknown]
  - Off label use [Unknown]
